FAERS Safety Report 4340152-5 (Version None)
Quarter: 2004Q2

REPORT INFORMATION
  Report Type: 
  Country: None (occurrence: None)
  Receive Date: 20040416
  Receipt Date: 20040416
  Transmission Date: 20050107
  Serious: Yes (Death)
  Sender: FDA-Public Use
  Company Number: None

PATIENT
  Sex: Male
  Weight: 97.0698 kg

DRUGS (5)
  1. PEG-INTRON [Suspect]
     Indication: HEPATITIS C
     Dosage: 141 MG (SC) WEEKS
     Route: 058
     Dates: start: 20030922, end: 20031126
  2. REBETOL [Suspect]
     Indication: HEPATITIS C
     Dosage: 600 MG BID (PO)
     Route: 048
     Dates: start: 20030922, end: 20031126
  3. XANAX [Concomitant]
  4. PROTONIX [Concomitant]
  5. TIOPRAN [Concomitant]

REACTIONS (5)
  - BLOOD CREATININE INCREASED [None]
  - CONFUSIONAL STATE [None]
  - GENERAL PHYSICAL HEALTH DETERIORATION [None]
  - INCOHERENT [None]
  - SUBDURAL HAEMATOMA [None]
